FAERS Safety Report 11133297 (Version 2)
Quarter: 2015Q2

REPORT INFORMATION
  Report Type: Spontaneous
  Country: US (occurrence: US)
  Receive Date: 20150522
  Receipt Date: 20150529
  Transmission Date: 20150821
  Serious: No
  Sender: FDA-Public Use
  Company Number: US-PFIZER INC-2015173341

PATIENT
  Age: 66 Year
  Sex: Male
  Weight: 91 kg

DRUGS (2)
  1. VIAGRA [Suspect]
     Active Substance: SILDENAFIL CITRATE
     Dosage: 100 MG, AS NEEDED
  2. VIAGRA [Suspect]
     Active Substance: SILDENAFIL CITRATE
     Indication: ERECTILE DYSFUNCTION
     Dosage: HALF OF A 100MG TABLET, AS NEEDED
     Route: 048
     Dates: start: 2008, end: 20150515

REACTIONS (8)
  - Gastric disorder [Unknown]
  - Drug effect incomplete [Recovered/Resolved]
  - Malaise [Unknown]
  - Drug ineffective [Recovered/Resolved]
  - Vision blurred [Recovered/Resolved]
  - Vomiting [Unknown]
  - Diarrhoea [Recovered/Resolved]
  - Headache [Recovered/Resolved]
